FAERS Safety Report 14425910 (Version 4)
Quarter: 2018Q1

REPORT INFORMATION
  Report Type: Spontaneous
  Country: US (occurrence: US)
  Receive Date: 20180123
  Receipt Date: 20180307
  Transmission Date: 20180509
  Serious: Yes (Hospitalization, Other)
  Sender: FDA-Public Use
  Company Number: US-PFIZER INC-2018027857

PATIENT
  Age: 66 Year
  Sex: Female

DRUGS (6)
  1. LEVOFLOXACIN. [Concomitant]
     Active Substance: LEVOFLOXACIN
     Indication: URINARY TRACT INFECTION
     Dosage: 500 MG, UNK
  2. IBRANCE [Suspect]
     Active Substance: PALBOCICLIB
     Indication: BONE CANCER
     Dosage: UNK
  3. VITAMIN E [Concomitant]
     Active Substance: .ALPHA.-TOCOPHEROL
     Dosage: UNK, (450)
  4. ANASTROZOL [Concomitant]
     Active Substance: ANASTROZOLE
     Dosage: 1 MG, UNK
  5. METOPROLOL TARTRATE. [Concomitant]
     Active Substance: METOPROLOL TARTRATE
     Dosage: 25 MG, UNK
  6. VITAMIN D [Concomitant]
     Active Substance: CHOLECALCIFEROL
     Dosage: UNK (5000)

REACTIONS (7)
  - Influenza [Unknown]
  - Chest injury [Unknown]
  - Osteoarthritis [Unknown]
  - Tendonitis [Unknown]
  - Urinary tract infection [Recovered/Resolved]
  - Dehydration [Unknown]
  - Bursitis [Unknown]

NARRATIVE: CASE EVENT DATE: 20180114
